FAERS Safety Report 4613560-2 (Version None)
Quarter: 2005Q1

REPORT INFORMATION
  Report Type: 
  Country: None (occurrence: None)
  Receive Date: 20050321
  Receipt Date: 20040113
  Transmission Date: 20050727
  Serious: Yes (Death)
  Sender: FDA-Public Use
  Company Number: 200410055JP

PATIENT
  Age: 57 Year
  Sex: Male
  Weight: 164.5 kg

DRUGS (10)
  1. ARAVA [Suspect]
     Indication: RHEUMATOID ARTHRITIS
     Route: 048
     Dates: start: 20030909, end: 20040112
  2. PREDNISOLONE [Concomitant]
     Indication: RHEUMATOID ARTHRITIS
     Route: 048
     Dates: start: 20021029, end: 20040115
  3. ULGUT [Concomitant]
     Indication: GASTRIC ULCER
     Route: 048
     Dates: end: 20040118
  4. INTEBAN [Concomitant]
     Indication: RHEUMATOID ARTHRITIS
     Route: 048
     Dates: start: 20030504, end: 20040118
  5. ENDOXAN [Concomitant]
     Indication: RHEUMATOID ARTHRITIS
     Route: 048
     Dates: start: 20030527, end: 20030908
  6. BIOFERMIN R [Concomitant]
     Indication: DIARRHOEA
     Route: 048
     Dates: start: 20031024, end: 20040112
  7. INFLUENZA VACCINE [Concomitant]
     Indication: INFLUENZA IMMUNISATION
     Route: 058
     Dates: start: 20031121, end: 20031121
  8. MORPHINE [Concomitant]
     Indication: RHEUMATOID ARTHRITIS
     Route: 062
     Dates: start: 20031205, end: 20040112
  9. SELBEX [Concomitant]
     Indication: ADVERSE DRUG REACTION
     Route: 048
     Dates: end: 20040118
  10. METHOTREXATE [Concomitant]
     Dosage: DOSE: 4MG/WEEK
     Route: 048
     Dates: start: 20010205, end: 20010501

REACTIONS (13)
  - BLOOD ALBUMIN DECREASED [None]
  - BLOOD ALKALINE PHOSPHATASE INCREASED [None]
  - BLOOD LACTATE DEHYDROGENASE INCREASED [None]
  - BLOOD UREA INCREASED [None]
  - CONDITION AGGRAVATED [None]
  - DIARRHOEA [None]
  - HAEMATOCRIT DECREASED [None]
  - INFECTION [None]
  - INTERSTITIAL LUNG DISEASE [None]
  - PNEUMOTHORAX [None]
  - PULMONARY FIBROSIS [None]
  - REFUSAL OF TREATMENT BY PATIENT [None]
  - THERAPY NON-RESPONDER [None]
